FAERS Safety Report 24936218 (Version 1)
Quarter: 2025Q1

REPORT INFORMATION
  Report Type: Spontaneous
  Country: US (occurrence: None)
  Receive Date: 20250205
  Receipt Date: 20250205
  Transmission Date: 20250409
  Serious: No
  Sender: FDA-CTU
  Company Number: None

PATIENT
  Age: 57 Year
  Sex: Male

DRUGS (1)
  1. NEULASTA [Suspect]
     Active Substance: PEGFILGRASTIM
     Indication: Anaemia
     Dosage: INJECT 6MG SUBCUTANEOUSLY 24-48 HOURS POST CHEMOTHERAPY EVERY 2 WEEKS AS DIRECTED.    ?
     Route: 058
     Dates: start: 202501

REACTIONS (1)
  - Death [None]
